FAERS Safety Report 9658421 (Version 1)
Quarter: 2013Q4

REPORT INFORMATION
  Report Type: Spontaneous
  Country: CA (occurrence: CA)
  Receive Date: 20131030
  Receipt Date: 20131030
  Transmission Date: 20140711
  Serious: Yes (Hospitalization)
  Sender: FDA-Public Use
  Company Number: CA-B.I. PHARMACEUTICALS,INC./RIDGEFIELD-2013-CN-01743CN

PATIENT
  Age: 78 Year
  Sex: Male
  Weight: 90 kg

DRUGS (9)
  1. PRADAXA [Suspect]
     Indication: ATRIAL FIBRILLATION
     Dosage: 300 MG
     Dates: start: 201306, end: 20131022
  2. DIGOXIN [Concomitant]
     Dosage: 0.25 MG
  3. EPLERENONE [Concomitant]
     Dosage: 25 MG
  4. METFORMIN [Concomitant]
     Dosage: 1500 MG
  5. LEVAQUIN [Concomitant]
  6. DILAUDID [Concomitant]
  7. METOPROLOL [Concomitant]
     Dosage: 10 MG
  8. LASIX [Concomitant]
  9. PANTOLOC [Concomitant]

REACTIONS (3)
  - Gastrointestinal haemorrhage [Recovered/Resolved]
  - Renal impairment [Recovered/Resolved]
  - Abdominal pain [Unknown]
